FAERS Safety Report 17889069 (Version 1)
Quarter: 2020Q2

REPORT INFORMATION
  Report Type: Spontaneous
  Country: ES (occurrence: ES)
  Receive Date: 20200612
  Receipt Date: 20200612
  Transmission Date: 20200714
  Serious: Yes (Death, Hospitalization)
  Sender: FDA-Public Use
  Company Number: ES-ACCORD-185116

PATIENT
  Age: 91 Year
  Sex: Female

DRUGS (2)
  1. METHOTREXATE. [Suspect]
     Active Substance: METHOTREXATE
     Indication: POLYMYALGIA RHEUMATICA
     Dosage: 2.5 MG TABLETS: 3 TABLETS EVERY SATURDAY (DTS: 7.5 MG)
     Route: 048
     Dates: start: 20160701, end: 20200210
  2. ZALDIAR [Suspect]
     Active Substance: ACETAMINOPHEN\TRAMADOL HYDROCHLORIDE
     Indication: ANALGESIC THERAPY
     Dosage: 2-2-2, STRENGTH: 37.5 MG / 325 MG, 20 TABLETS
     Route: 048
     Dates: start: 20190129, end: 20200205

REACTIONS (2)
  - Pancytopenia [Fatal]
  - Toxic skin eruption [Fatal]

NARRATIVE: CASE EVENT DATE: 20200210
